FAERS Safety Report 8861911 (Version 3)
Quarter: 2013Q1

REPORT INFORMATION
  Report Type: Spontaneous
  Country: US (occurrence: US)
  Receive Date: 20121025
  Receipt Date: 20130121
  Transmission Date: 20140127
  Serious: No
  Sender: FDA-Public Use
  Company Number: US-009507513-1210USA001215

PATIENT
  Sex: Female

DRUGS (3)
  1. AZASITE [Suspect]
     Dosage: 2 GTT, ONCE
     Route: 047
     Dates: start: 20120925, end: 20120925
  2. AZASITE [Suspect]
     Dosage: 2 GTT, ONCE
     Route: 047
     Dates: start: 20120929, end: 20120929
  3. AZASITE [Suspect]
     Dosage: UNK
     Route: 047

REACTIONS (4)
  - Product packaging quantity issue [Unknown]
  - Drug dose omission [Unknown]
  - No adverse event [Unknown]
  - Inappropriate schedule of drug administration [Unknown]
